FAERS Safety Report 6847291-5 (Version None)
Quarter: 2010Q3

REPORT INFORMATION
  Report Type: 
  Country: None (occurrence: None)
  Receive Date: 20100713
  Receipt Date: 20100628
  Transmission Date: 20110219
  Serious: Yes (Other)
  Sender: FDA-Public Use
  Company Number: 230026J10CAN

PATIENT
  Sex: Female

DRUGS (7)
  1. REBIF [Suspect]
     Indication: RELAPSING-REMITTING MULTIPLE SCLEROSIS
     Dosage: 44 MCG, 3 IN 1 WK, 50%, 20%
     Dates: start: 20091229, end: 20100101
  2. REBIF [Suspect]
     Indication: RELAPSING-REMITTING MULTIPLE SCLEROSIS
     Dosage: 44 MCG, 3 IN 1 WK, 50%, 20%
     Dates: start: 20100101, end: 20100126
  3. REBIF [Suspect]
     Indication: RELAPSING-REMITTING MULTIPLE SCLEROSIS
     Dosage: 44 MCG, 3 IN 1 WK, 50%, 20%
     Dates: start: 20100126
  4. VITAMIN B12 [Concomitant]
  5. VITAMIN D [Concomitant]
  6. SYNTHROID [Concomitant]
  7. LOESTRIN (ANOVLAR) [Concomitant]

REACTIONS (27)
  - ABDOMINAL PAIN UPPER [None]
  - BLADDER DISORDER [None]
  - BRUXISM [None]
  - CHEST PAIN [None]
  - DIPLOPIA [None]
  - FEELING HOT [None]
  - GINGIVAL DISORDER [None]
  - GINGIVAL PAIN [None]
  - HEADACHE [None]
  - HYPERHIDROSIS [None]
  - HYPOAESTHESIA [None]
  - INFLUENZA LIKE ILLNESS [None]
  - INJECTION SITE ERYTHEMA [None]
  - INJECTION SITE HAEMORRHAGE [None]
  - INJECTION SITE PAIN [None]
  - MALAISE [None]
  - MULTIPLE SCLEROSIS RELAPSE [None]
  - NAUSEA [None]
  - OESOPHAGITIS [None]
  - PAIN IN JAW [None]
  - PARAESTHESIA [None]
  - PYREXIA [None]
  - TOOTH FRACTURE [None]
  - TREMOR [None]
  - VISION BLURRED [None]
  - VOMITING [None]
  - WEIGHT DECREASED [None]
